FAERS Safety Report 6992544-3 (Version None)
Quarter: 2010Q3

REPORT INFORMATION
  Report Type: 
  Country: None (occurrence: None)
  Receive Date: 20100917
  Receipt Date: 20100912
  Transmission Date: 20110219
  Serious: Yes (Death, Life-Threatening, Other)
  Sender: FDA-Public Use
  Company Number: US-SANOFI-AVENTIS-2010SA055390

PATIENT
  Age: 80 Year
  Sex: Female

DRUGS (1)
  1. PLAVIX [Suspect]
     Route: 048

REACTIONS (4)
  - ARTHROPATHY [None]
  - ELECTROMECHANICAL DISSOCIATION [None]
  - MYOCARDIAL INFARCTION [None]
  - POST PROCEDURAL HAEMORRHAGE [None]
